FAERS Safety Report 22182475 (Version 4)
Quarter: 2024Q1

REPORT INFORMATION
  Report Type: Report from Study
  Country: JP (occurrence: JP)
  Receive Date: 20230406
  Receipt Date: 20240312
  Transmission Date: 20240410
  Serious: Yes (Hospitalization, Other)
  Sender: FDA-Public Use
  Company Number: JP-ONO-2023JP008288

PATIENT
  Age: 67 Year
  Sex: Male
  Weight: 52 kg

DRUGS (10)
  1. OPDIVO [Suspect]
     Active Substance: NIVOLUMAB
     Indication: Gastric cancer
     Dosage: 360 MG
     Route: 041
     Dates: start: 20220427, end: 20220802
  2. OPDIVO [Suspect]
     Active Substance: NIVOLUMAB
     Dosage: 360 MG
     Route: 041
     Dates: start: 20220913, end: 20221004
  3. GIMERACIL\OTERACIL\TEGAFUR [Suspect]
     Active Substance: GIMERACIL\OTERACIL POTASSIUM\TEGAFUR
     Indication: Gastric cancer
     Dosage: UNK
     Route: 048
     Dates: start: 20220427, end: 20220529
  4. GIMERACIL\OTERACIL\TEGAFUR [Suspect]
     Active Substance: GIMERACIL\OTERACIL POTASSIUM\TEGAFUR
     Dosage: UNK
     Route: 048
     Dates: start: 20220530, end: 20220620
  5. GIMERACIL\OTERACIL\TEGAFUR [Suspect]
     Active Substance: GIMERACIL\OTERACIL POTASSIUM\TEGAFUR
     Dosage: UNK
     Route: 048
     Dates: start: 20220621, end: 20221018
  6. OXALIPLATIN [Concomitant]
     Active Substance: OXALIPLATIN
     Indication: Gastric cancer
     Dosage: 205 MG
     Dates: start: 20220427, end: 20220427
  7. OXALIPLATIN [Concomitant]
     Active Substance: OXALIPLATIN
     Dosage: 165 MG
     Dates: start: 20220530, end: 20220530
  8. OXALIPLATIN [Concomitant]
     Active Substance: OXALIPLATIN
     Dosage: 135 MG
     Dates: start: 20220621, end: 20220802
  9. PACLITAXEL [Concomitant]
     Active Substance: PACLITAXEL
  10. RAMUCIRUMAB [Concomitant]
     Active Substance: RAMUCIRUMAB

REACTIONS (17)
  - Atrial fibrillation [Recovered/Resolved]
  - Alanine aminotransferase increased [Not Recovered/Not Resolved]
  - Aspartate aminotransferase increased [Not Recovered/Not Resolved]
  - Anaemia [Not Recovered/Not Resolved]
  - Decreased appetite [Recovered/Resolved]
  - Blood creatinine increased [Not Recovered/Not Resolved]
  - Diarrhoea [Recovered/Resolved]
  - Hypoalbuminaemia [Not Recovered/Not Resolved]
  - Lymphocyte count decreased [Not Recovered/Not Resolved]
  - Malaise [Not Recovered/Not Resolved]
  - Nausea [Recovered/Resolved]
  - Neutrophil count decreased [Recovered/Resolved]
  - Peripheral sensory neuropathy [Not Recovered/Not Resolved]
  - White blood cell count decreased [Recovered/Resolved]
  - Oedema peripheral [Not Recovered/Not Resolved]
  - Drug ineffective [Unknown]
  - Condition aggravated [Not Recovered/Not Resolved]

NARRATIVE: CASE EVENT DATE: 20220428
